FAERS Safety Report 5586935-5 (Version None)
Quarter: 2007Q4

REPORT INFORMATION
  Report Type: 
  Country: None (occurrence: None)
  Receive Date: 20071205
  Receipt Date: 20061116
  Transmission Date: 20080405
  Serious: Yes (Other)
  Sender: FDA-Public Use
  Company Number: HQWYE834717NOV06

PATIENT
  Age: 56 Year
  Sex: Female
  Weight: 82.63 kg

DRUGS (8)
  1. EFFEXOR XR [Suspect]
     Indication: DEPRESSION
     Dosage: 75 MG, 400 MG, 1 X PER 1 DAY, ORAL
     Route: 048
     Dates: start: 20020101
  2. ATENOLOL [Concomitant]
  3. ZOCOR [Concomitant]
  4. SEROQUEL [Concomitant]
  5. CLONAZEPAM [Concomitant]
  6. LEVOTHYROXINE SODIUM [Concomitant]
  7. PRIMIDONE [Concomitant]
  8. TRIMIPRAMINE MALEATE [Concomitant]

REACTIONS (1)
  - BLOOD CHOLESTEROL INCREASED [None]
